FAERS Safety Report 8861817 (Version 4)
Quarter: 2013Q1

REPORT INFORMATION
  Report Type: Spontaneous
  Country: DE (occurrence: None)
  Receive Date: 20121024
  Receipt Date: 20121128
  Transmission Date: 20140127
  Serious: Yes (Hospitalization, Other)
  Sender: FDA-Public Use
  Company Number: AUR-APL-2012-04474

PATIENT
  Age: 31 Year
  Sex: Female
  Weight: 150 kg

DRUGS (6)
  1. METFORMIN [Suspect]
     Indication: TYPE 2 DIABETES MELLITUS
     Route: 048
     Dates: start: 20090709, end: 20100126
  2. RAMIPRIL (RAMIPRIL) [Suspect]
     Indication: HYPERTENSION
     Route: 048
     Dates: start: 20090709, end: 20100126
  3. METOPROLOL [Suspect]
     Indication: HYPERTENSION
     Route: 048
     Dates: start: 20090709, end: 20100126
  4. DOPEGYT (METHYLDOPA) [Concomitant]
  5. NOVORAPID (INSULIN ASPART) [Concomitant]
  6. PROTAPHANE (INSULIN HUMAN INJECTION, ISOPHANE) [Concomitant]

REACTIONS (6)
  - Oligohydramnios [None]
  - Transaminases increased [None]
  - Caesarean section [None]
  - HELLP syndrome [None]
  - Premature delivery [None]
  - Exposure during pregnancy [None]
